FAERS Safety Report 18954123 (Version 1)
Quarter: 2021Q1

REPORT INFORMATION
  Report Type: Spontaneous
  Country: DE (occurrence: DE)
  Receive Date: 20210301
  Receipt Date: 20210301
  Transmission Date: 20210420
  Serious: Yes (Congenital Anomaly, Other)
  Sender: FDA-Public Use
  Company Number: DE-GLAXOSMITHKLINE-DE2021053563

PATIENT
  Sex: Female
  Weight: 3.72 kg

DRUGS (5)
  1. RELVAR ELLIPTA [Suspect]
     Active Substance: FLUTICASONE FUROATE\VILANTEROL TRIFENATATE
     Indication: ASTHMA
     Dosage: UNK (92 [?G/D (ALLE 1?2 TAGE) ] / 22 [?G/D (ALLE 1?2 TAGE) ])
     Route: 064
  2. LORATADIN [Suspect]
     Active Substance: LORATADINE
     Indication: SEASONAL ALLERGY
     Dosage: UNK
     Route: 064
  3. SNUP SPRAY (XYLOMETAZOLINE) [Concomitant]
     Indication: RHINITIS ALLERGIC
     Dosage: UNK
     Route: 064
     Dates: start: 20200118, end: 20201022
  4. MOMETASONE [Concomitant]
     Active Substance: MOMETASONE
     Indication: SEASONAL ALLERGY
     Dosage: UNK
     Route: 064
  5. INFLUVAC TETRA [Concomitant]
     Active Substance: INFLUENZA VIRUS VACCINE QUADRIVALENT TYPE A+B
     Indication: IMMUNISATION
     Dosage: UNK
     Route: 064
     Dates: start: 20200911, end: 20200911

REACTIONS (3)
  - Foetal exposure during pregnancy [Unknown]
  - Ventricular septal defect [Unknown]
  - Atrial septal defect [Unknown]
